FAERS Safety Report 26015894 (Version 1)
Quarter: 2025Q4

REPORT INFORMATION
  Report Type: Spontaneous
  Country: CN (occurrence: CN)
  Receive Date: 20251109
  Receipt Date: 20251109
  Transmission Date: 20260117
  Serious: Yes (Hospitalization)
  Sender: BEIGENE
  Company Number: CN-BEIGENE-BGN-2025-019077

PATIENT
  Age: 76 Year
  Weight: 55 kg

DRUGS (6)
  1. TISLELIZUMAB [Suspect]
     Active Substance: TISLELIZUMAB
     Indication: Transitional cell carcinoma
     Dosage: 200 MILLIGRAM
  2. TISLELIZUMAB [Suspect]
     Active Substance: TISLELIZUMAB
     Dosage: 200 MILLIGRAM
     Route: 041
  3. TISLELIZUMAB [Suspect]
     Active Substance: TISLELIZUMAB
     Dosage: 200 MILLIGRAM
     Route: 041
  4. TISLELIZUMAB [Suspect]
     Active Substance: TISLELIZUMAB
     Dosage: 200 MILLIGRAM
  5. DISITAMAB VEDOTIN [Concomitant]
     Active Substance: DISITAMAB VEDOTIN
     Indication: Transitional cell carcinoma
     Dosage: 110 MILLIGRAM, QD
     Route: 041
  6. DISITAMAB VEDOTIN [Concomitant]
     Active Substance: DISITAMAB VEDOTIN
     Dosage: 110 MILLIGRAM, QD

REACTIONS (1)
  - Hypersensitivity [Recovering/Resolving]
